FAERS Safety Report 6437169-3 (Version None)
Quarter: 2009Q4

REPORT INFORMATION
  Report Type: 
  Country: None (occurrence: None)
  Receive Date: 20091029
  Receipt Date: 20091015
  Transmission Date: 20100525
  Serious: Yes (Other)
  Sender: FDA-Public Use
  Company Number: 2009021082

PATIENT
  Sex: Female
  Weight: 125 kg

DRUGS (1)
  1. VIVAGLOBULIN          (IMMUNE GLOBULIN SUBCUCTANEOUS (HUMAN [Suspect]
     Indication: HYPOGAMMAGLOBULINAEMIA
     Dosage: 50 ML, 50 ML WEEKLY SUBCUTANEOUS
     Route: 058
     Dates: start: 20090929, end: 20090929

REACTIONS (7)
  - BONE PAIN [None]
  - INFLUENZA LIKE ILLNESS [None]
  - INFUSION SITE MASS [None]
  - INFUSION SITE PAIN [None]
  - INFUSION SITE PRURITUS [None]
  - INFUSION SITE URTICARIA [None]
  - KIDNEY INFECTION [None]
